FAERS Safety Report 23633736 (Version 1)
Quarter: 2024Q1

REPORT INFORMATION
  Report Type: Spontaneous
  Country: US (occurrence: US)
  Receive Date: 20240314
  Receipt Date: 20240314
  Transmission Date: 20240410
  Serious: No
  Sender: FDA-Public Use
  Company Number: US-BAYER-2024A028648

PATIENT
  Age: 16 Year
  Sex: Male
  Weight: 72.562 kg

DRUGS (2)
  1. JIVI [Suspect]
     Active Substance: DAMOCTOCOG ALFA PEGOL
     Indication: Factor VIII deficiency
     Dosage: 600 U, BIW
     Route: 042
     Dates: start: 202211
  2. JIVI [Suspect]
     Active Substance: DAMOCTOCOG ALFA PEGOL
     Indication: Factor VIII deficiency
     Dosage: 2000 U, BIW
     Route: 042
     Dates: start: 202211

REACTIONS (2)
  - Ligament sprain [None]
  - Weight increased [None]

NARRATIVE: CASE EVENT DATE: 20230901
